FAERS Safety Report 18757354 (Version 1)
Quarter: 2021Q1

REPORT INFORMATION
  Report Type: Spontaneous
  Country: US (occurrence: US)
  Receive Date: 20210119
  Receipt Date: 20210119
  Transmission Date: 20210419
  Serious: Yes (Hospitalization, Other)
  Sender: FDA-Public Use
  Company Number: US-LUPIN PHARMACEUTICALS INC.-2021-00184

PATIENT
  Age: 73 Year
  Sex: Female

DRUGS (6)
  1. AMPICILLIN [Suspect]
     Active Substance: AMPICILLIN
     Indication: PROTEUS INFECTION
  2. VANCOMYCIN [Suspect]
     Active Substance: VANCOMYCIN
     Indication: PROTEUS INFECTION
  3. AMPICILLIN [Suspect]
     Active Substance: AMPICILLIN
     Indication: OSTEOMYELITIS
     Dosage: UNK (COURSE COMPLETED)
     Route: 065
  4. VANCOMYCIN [Suspect]
     Active Substance: VANCOMYCIN
     Indication: OSTEOMYELITIS
     Dosage: UNK (COURSE COMPLETED)
     Route: 065
  5. SULBACTAM [Suspect]
     Active Substance: SULBACTAM
     Indication: OSTEOMYELITIS
     Dosage: UNK (COURSE COMPLETED)
     Route: 065
  6. SULBACTAM [Suspect]
     Active Substance: SULBACTAM
     Indication: PROTEUS INFECTION

REACTIONS (2)
  - Crystal nephropathy [Unknown]
  - Renal tubular necrosis [Unknown]
